FAERS Safety Report 7827250-6 (Version None)
Quarter: 2011Q4

REPORT INFORMATION
  Report Type: 
  Country: None (occurrence: None)
  Receive Date: 20111020
  Receipt Date: 20111009
  Transmission Date: 20120403
  Serious: Yes (Death, Other)
  Sender: FDA-Public Use
  Company Number: US-BRISTOL-MYERS SQUIBB COMPANY-16163537

PATIENT
  Age: 89 Year
  Sex: Female

DRUGS (9)
  1. SINEMET [Suspect]
     Indication: PARKINSON'S DISEASE
     Dosage: 1DF:1.5TABS OF LEVADOPA100MG/CARBIDOPA 25MG
  2. ARICEPT [Concomitant]
     Indication: DEMENTIA
     Dosage: TABS
  3. CALCIUM CARBONATE [Concomitant]
     Indication: OSTEOPOROSIS
  4. PRAVACHOL [Concomitant]
     Indication: DYSLIPIDAEMIA
  5. ACETAMINOPHEN [Concomitant]
     Indication: PAIN
     Dosage: 1DF:2 TABS 500MG
  6. SYNTHROID [Concomitant]
     Indication: HYPOTHYROIDISM
  7. SANCTURA [Suspect]
     Indication: HYPERTONIC BLADDER
     Dosage: SANCTURA XR TABS
  8. TIMOLOL MALEATE [Concomitant]
     Indication: GLAUCOMA
     Dosage: 0.5%SOLUTION
  9. FOSAMAX [Concomitant]
     Indication: OSTEOPOROSIS

REACTIONS (2)
  - PULMONARY EMBOLISM [None]
  - ORTHOSTATIC HYPOTENSION [None]
